FAERS Safety Report 22689486 (Version 2)
Quarter: 2023Q4

REPORT INFORMATION
  Report Type: Spontaneous
  Country: NL (occurrence: NL)
  Receive Date: 20230711
  Receipt Date: 20231205
  Transmission Date: 20240109
  Serious: Yes (Hospitalization, Other)
  Sender: FDA-Public Use
  Company Number: NL-Daleco-2023-NL-000050

PATIENT
  Age: 69 Year
  Sex: Female

DRUGS (8)
  1. QUETIAPINE [Suspect]
     Active Substance: QUETIAPINE
     Indication: Sleep disorder
     Dosage: A LITTLE BIT LESS THAN HALF A TABLET, MAYBE JUST A QUARTER
     Route: 065
  2. QUETIAPINE [Suspect]
     Active Substance: QUETIAPINE
     Indication: Insomnia
     Dosage: I STARTED WITH A FULL TABLET
     Route: 065
  3. QUETIAPINE [Suspect]
     Active Substance: QUETIAPINE
     Dosage: 0.5 DOSAGE FORM, ONCE A DAY
     Route: 065
  4. TRANYLCYPROMINE SULFATE [Suspect]
     Active Substance: TRANYLCYPROMINE SULFATE
     Indication: Depression
     Dosage: 50 MILLIGRAM, ONCE A DAY
     Route: 048
  5. TRANYLCYPROMINE SULFATE [Suspect]
     Active Substance: TRANYLCYPROMINE SULFATE
     Dosage: 2 DOSAGE FORM(PATIENT WAS ONCE DISCHARGED FROM HOSPITAL WITH TWO TABLETS)
     Route: 065
  6. TRANYLCYPROMINE SULFATE [Suspect]
     Active Substance: TRANYLCYPROMINE SULFATE
     Dosage: STARTED LAST YEAR AROUND THE END OF MAY
     Route: 065
     Dates: start: 202205
  7. TRANYLCYPROMINE SULFATE [Suspect]
     Active Substance: TRANYLCYPROMINE SULFATE
     Dosage: 50 MILLIGRAM, ONCE A DAY(1.5 TABLET IN THE MORNING, 1 TABLET AT AROUND 13:30)
     Route: 065
  8. EUTHYROX [Concomitant]
     Active Substance: LEVOTHYROXINE SODIUM
     Indication: Hypothyroidism
     Dosage: UNK
     Route: 065

REACTIONS (6)
  - Depression [Recovered/Resolved]
  - Hypertensive crisis [Not Recovered/Not Resolved]
  - Food interaction [Not Recovered/Not Resolved]
  - Blood pressure systolic increased [Not Recovered/Not Resolved]
  - Contraindicated product administered [Not Recovered/Not Resolved]
  - Insomnia [Unknown]
